FAERS Safety Report 7739422-X (Version None)
Quarter: 2011Q3

REPORT INFORMATION
  Report Type: 
  Country: None (occurrence: None)
  Receive Date: 20110909
  Receipt Date: 20100323
  Transmission Date: 20111222
  Serious: No
  Sender: FDA-Public Use
  Company Number: CA-BAYER-201018142NA

PATIENT
  Age: 30 Year
  Sex: Female

DRUGS (1)
  1. MIRENA [Suspect]
     Indication: PRODUCT USED FOR UNKNOWN INDICATION
     Dosage: 20 MCG/24HR, CONT
     Route: 015
     Dates: start: 20100318

REACTIONS (1)
  - COITAL BLEEDING [None]
